FAERS Safety Report 18250822 (Version 1)
Quarter: 2020Q3

REPORT INFORMATION
  Report Type: Spontaneous
  Country: TR (occurrence: TR)
  Receive Date: 20200910
  Receipt Date: 20200910
  Transmission Date: 20201103
  Serious: No
  Sender: FDA-Public Use
  Company Number: TR-TOLMAR, INC.-20TR022612

PATIENT
  Age: 16 Year
  Sex: Female

DRUGS (2)
  1. IMIQUIMOD. [Suspect]
     Active Substance: IMIQUIMOD
     Indication: FOCAL EPITHELIAL HYPERPLASIA
     Dosage: UNK, 3 CONSECUTIVE DAYS/WEEK
     Route: 061
  2. IMIQUIMOD. [Suspect]
     Active Substance: IMIQUIMOD
     Dosage: UNK, 5/WEEK
     Route: 061

REACTIONS (1)
  - Off label use [Unknown]
